FAERS Safety Report 9664548 (Version 1)
Quarter: 2013Q4

REPORT INFORMATION
  Report Type: Spontaneous
  Country: NZ (occurrence: NZ)
  Receive Date: 20131101
  Receipt Date: 20131101
  Transmission Date: 20140711
  Serious: Yes (Death, Hospitalization, Other)
  Sender: FDA-Public Use
  Company Number: NZ-ASTRAZENECA-2013SE80176

PATIENT
  Sex: Female

DRUGS (2)
  1. BRILINTA [Suspect]
     Route: 048
  2. CLOPIDOGREL [Concomitant]

REACTIONS (5)
  - Syncope [Fatal]
  - Chest pain [Fatal]
  - Hyperhidrosis [Fatal]
  - Electrocardiogram ST segment abnormal [Fatal]
  - Thrombosis in device [Fatal]
